FAERS Safety Report 5242895-8 (Version None)
Quarter: 2007Q1

REPORT INFORMATION
  Report Type: 
  Country: None (occurrence: None)
  Receive Date: 20070215
  Receipt Date: 20070201
  Transmission Date: 20070707
  Serious: Yes (Death)
  Sender: FDA-Public Use
  Company Number: 235610

PATIENT
  Age: 52 Year
  Sex: Female
  Weight: 59 kg

DRUGS (22)
  1. AVASTIN [Suspect]
     Indication: COLON CANCER
     Dosage: 590 MG, Q4W, INTRAVENOUS
     Route: 042
     Dates: start: 20051128
  2. DIFLUCAN [Concomitant]
  3. MILES MAGIC MIXTURE (GLYCERYL, H20, LIDOCAINE (GLYCERIN, LIDOCAINE, NY [Concomitant]
  4. DILAUDID [Concomitant]
  5. ZOVIRAX [Concomitant]
  6. VISCOUS LIDOCAINE (LIDOCAINE HYDROCHLORIDE) [Concomitant]
  7. AMITRIPTYLINE HCL [Concomitant]
  8. SANDOSTATIN [Concomitant]
  9. FENTANYL CITRATE [Concomitant]
  10. PHENERGAN (PROMETHAZINE HYDROCHLORIDE) [Concomitant]
  11. POTASSIUM (POTASSIUM NOS) [Concomitant]
  12. BUSPAR [Concomitant]
  13. SPIRONOLACTONE [Concomitant]
  14. PAREGORIC [Concomitant]
  15. ZITHROMAX [Concomitant]
  16. MEGACE [Concomitant]
  17. MARINOL [Concomitant]
  18. SYNTHROID [Concomitant]
  19. LOMOTIL [Concomitant]
  20. CLARITIN [Concomitant]
  21. ACYCLOVIR [Concomitant]
  22. BENADRYL [Concomitant]

REACTIONS (1)
  - NASAL SEPTUM PERFORATION [None]
